FAERS Safety Report 13274443 (Version 1)
Quarter: 2017Q1

REPORT INFORMATION
  Report Type: Spontaneous
  Country: BR (occurrence: BR)
  Receive Date: 20170227
  Receipt Date: 20170227
  Transmission Date: 20170428
  Serious: Yes (Other)
  Sender: FDA-Public Use
  Company Number: PHHY2017BR027388

PATIENT
  Age: 80 Year
  Sex: Male

DRUGS (1)
  1. FORASEQ [Suspect]
     Active Substance: BUDESONIDE\FORMOTEROL FUMARATE
     Indication: PRODUCT USED FOR UNKNOWN INDICATION
     Route: 065

REACTIONS (9)
  - Renal impairment [Unknown]
  - Cardiac disorder [Unknown]
  - Deafness [Unknown]
  - Exostosis [Unknown]
  - Lung disorder [Unknown]
  - Gout [Unknown]
  - Dyspnoea [Recovering/Resolving]
  - Blister [Unknown]
  - Blood uric acid increased [Unknown]
